FAERS Safety Report 9341702 (Version 1)
Quarter: 2013Q2

REPORT INFORMATION
  Report Type: Spontaneous
  Country: US (occurrence: None)
  Receive Date: 20130606
  Receipt Date: 20130606
  Transmission Date: 20140414
  Serious: No
  Sender: FDA-Public Use
  Company Number: B0896173A

PATIENT
  Sex: 0

DRUGS (5)
  1. MELPHALAN (FORMULATION UNKNOWN) (GENERIC) (MELPHALAN) [Suspect]
     Indication: AMYLOIDOSIS
     Dosage: 5 MG/M2
  2. LENALIDOMIDE [Suspect]
     Indication: AMYLOIDOSIS
  3. DEXAMETHASONE [Suspect]
     Indication: AMYLOIDOSIS
  4. ASPIRIN [Concomitant]
  5. PROTON PUMP INHIBITORS [Concomitant]

REACTIONS (3)
  - Toxicity to various agents [None]
  - Dacryostenosis acquired [None]
  - Drug effect decreased [None]
